FAERS Safety Report 17126893 (Version 1)
Quarter: 2019Q4

REPORT INFORMATION
  Report Type: Spontaneous
  Country: ES (occurrence: ES)
  Receive Date: 20191209
  Receipt Date: 20191209
  Transmission Date: 20200122
  Serious: Yes (Other)
  Sender: FDA-Public Use
  Company Number: ES-009507513-1912ESP001359

PATIENT
  Age: 38 Year
  Sex: Male

DRUGS (1)
  1. PEMBROLIZUMAB. [Suspect]
     Active Substance: PEMBROLIZUMAB
     Indication: MALIGNANT MELANOMA
     Dosage: 6 CYCLES

REACTIONS (2)
  - Immune-mediated uveitis [Recovered/Resolved]
  - Optic neuritis [Recovered/Resolved]
